FAERS Safety Report 19948731 (Version 1)
Quarter: 2021Q4

REPORT INFORMATION
  Report Type: Spontaneous
  Country: US (occurrence: US)
  Receive Date: 20211008
  Receipt Date: 20211008
  Transmission Date: 20220303
  Serious: Yes (Hospitalization)
  Sender: FDA-Public Use
  Company Number: None

PATIENT
  Age: 99 Year
  Sex: Male

DRUGS (1)
  1. ABIRATERONE [Suspect]
     Active Substance: ABIRATERONE
     Route: 048
     Dates: start: 202006

REACTIONS (7)
  - Dehydration [None]
  - Malaise [None]
  - Pain [None]
  - Nausea [None]
  - Hypophagia [None]
  - Asthenia [None]
  - Mobility decreased [None]

NARRATIVE: CASE EVENT DATE: 20210911
